FAERS Safety Report 25262802 (Version 1)
Quarter: 2025Q2

REPORT INFORMATION
  Report Type: Spontaneous
  Country: US (occurrence: None)
  Receive Date: 20250501
  Receipt Date: 20250501
  Transmission Date: 20250717
  Serious: Yes (Life-Threatening)
  Sender: FDA-CTU
  Company Number: None

PATIENT
  Age: 25 Year
  Sex: Female

DRUGS (1)
  1. AMOXICILLIN\CLAVULANATE POTASSIUM [Suspect]
     Active Substance: AMOXICILLIN\CLAVULANATE POTASSIUM
     Indication: Anaphylactic reaction
     Dates: start: 20241008, end: 20241008

REACTIONS (10)
  - Angioedema [None]
  - Anaphylactic reaction [None]
  - Pruritus [None]
  - Swelling face [None]
  - Throat tightness [None]
  - Dysphagia [None]
  - Rash [None]
  - Urticaria [None]
  - Nausea [None]
  - Vomiting [None]

NARRATIVE: CASE EVENT DATE: 20241008
